FAERS Safety Report 9598312 (Version 1)
Quarter: 2013Q4

REPORT INFORMATION
  Report Type: Spontaneous
  Country: US (occurrence: US)
  Receive Date: 20131004
  Receipt Date: 20131004
  Transmission Date: 20140711
  Serious: No
  Sender: FDA-Public Use
  Company Number: US-AMGEN-USASP2013023210

PATIENT
  Age: 55 Year
  Sex: Female
  Weight: 58.96 kg

DRUGS (5)
  1. ENBREL [Suspect]
     Indication: PRODUCT USED FOR UNKNOWN INDICATION
     Dosage: 50 MG, QWK
     Route: 058
  2. PLAQUENIL                          /00072602/ [Concomitant]
     Dosage: 200 MG, UNK
  3. VOLTAREN                           /00372301/ [Concomitant]
     Dosage: 75 MG, UNK
  4. GABAPENTIN [Concomitant]
     Dosage: 400 MG, UNK
  5. SAVELLA [Concomitant]
     Dosage: 12.5 MG, UNK

REACTIONS (1)
  - Drug ineffective [Unknown]
